FAERS Safety Report 4402269-6 (Version None)
Quarter: 2004Q3

REPORT INFORMATION
  Report Type: 
  Country: None (occurrence: None)
  Receive Date: 20040720
  Receipt Date: 20040709
  Transmission Date: 20050211
  Serious: Yes (Other)
  Sender: FDA-Public Use
  Company Number: US-GLAXOSMITHKLINE-A0517674A

PATIENT
  Age: 75 Year
  Sex: Male

DRUGS (2)
  1. ZOVIRAX [Suspect]
     Route: 048
  2. PREDNISONE [Suspect]
     Route: 065

REACTIONS (4)
  - HEADACHE [None]
  - VISION BLURRED [None]
  - VISUAL ACUITY REDUCED [None]
  - VISUAL DISTURBANCE [None]
